FAERS Safety Report 8509812-6 (Version None)
Quarter: 2012Q3

REPORT INFORMATION
  Report Type: 
  Country: None (occurrence: None)
  Receive Date: 20120703
  Receipt Date: 20120618
  Transmission Date: 20120928
  Serious: Yes (Death, Hospitalization, Other)
  Sender: FDA-Public Use
  Company Number: EU-2012-10156

PATIENT
  Age: 64 Year
  Sex: Female

DRUGS (8)
  1. SPIRON (SPIRONOLACTONE) TABLET [Concomitant]
  2. NIZORAL (KETOCONAZOLE) TABLET [Concomitant]
  3. SAMSCA [Suspect]
     Indication: HYPONATRAEMIA
     Dosage: 15 MG MILLIGRAM(S), QOD, ORAL
     Route: 048
  4. RADIATION THERAPY [Concomitant]
  5. ETOPOSIDE [Concomitant]
  6. THIAMINE (THIAMINE) TABLET [Concomitant]
  7. CARBOPLATIN [Concomitant]
  8. POTASSIUM CHLORIDE [Concomitant]

REACTIONS (9)
  - RESPIRATORY DISORDER [None]
  - ABDOMINAL PAIN [None]
  - ESCHERICHIA TEST POSITIVE [None]
  - PANCYTOPENIA [None]
  - DRUG DOSE OMISSION [None]
  - PROCEDURAL COMPLICATION [None]
  - CUSHING'S SYNDROME [None]
  - SEPSIS [None]
  - ILEUS [None]
